FAERS Safety Report 4689362-8 (Version None)
Quarter: 2005Q2

REPORT INFORMATION
  Report Type: 
  Country: None (occurrence: None)
  Receive Date: 20050608
  Receipt Date: 20050207
  Transmission Date: 20051028
  Serious: No
  Sender: FDA-Public Use
  Company Number: 2005-BP-01162BP

PATIENT
  Age: 57 Year
  Sex: Female

DRUGS (8)
  1. SPIRIVA [Suspect]
     Indication: ASTHMA
     Dosage: 18 MCG (18 MCG, 1 IN 1 D), IH
     Route: 055
     Dates: start: 20041101
  2. SPIRIVA [Suspect]
     Indication: CHRONIC OBSTRUCTIVE PULMONARY DISEASE
     Dosage: 18 MCG (18 MCG, 1 IN 1 D), IH
     Route: 055
     Dates: start: 20041101
  3. SPIRIVA [Suspect]
  4. ADVAIR DISKUS 100/50 [Concomitant]
  5. SINGULAIR (MONTELUKAST) [Concomitant]
  6. VERAPAMIL SR (VERAPAMIL HYDROCHLORIDE) [Concomitant]
  7. SYNTHROID [Concomitant]
  8. LIPITOR [Concomitant]

REACTIONS (1)
  - AGEUSIA [None]
